FAERS Safety Report 19089573 (Version 4)
Quarter: 2021Q3

REPORT INFORMATION
  Report Type: Report from Study
  Country: US (occurrence: US)
  Receive Date: 20210403
  Receipt Date: 20210702
  Transmission Date: 20211014
  Serious: No
  Sender: FDA-Public Use
  Company Number: NVSC2021US073763

PATIENT
  Age: 28 Year
  Sex: Male

DRUGS (2)
  1. COSENTYX [Suspect]
     Active Substance: SECUKINUMAB
     Indication: PSORIASIS
     Dosage: 300 MG
     Route: 058
  2. COSENTYX [Suspect]
     Active Substance: SECUKINUMAB
     Indication: PSORIASIS
     Dosage: 300 MG, QW (QW FOR 5 WEEKS, THEN ONCE Q4W)
     Route: 058
     Dates: start: 20210121

REACTIONS (2)
  - Psoriasis [Unknown]
  - Sunburn [Recovering/Resolving]

NARRATIVE: CASE EVENT DATE: 20210524
